FAERS Safety Report 6400118-8 (Version None)
Quarter: 2009Q4

REPORT INFORMATION
  Report Type: 
  Country: None (occurrence: None)
  Receive Date: 20091014
  Receipt Date: 20091006
  Transmission Date: 20100525
  Serious: Yes (Other)
  Sender: FDA-Public Use
  Company Number: US-ELI_LILLY_AND_COMPANY-US200910001259

PATIENT
  Sex: Female

DRUGS (9)
  1. HUMULIN N [Suspect]
     Indication: TYPE 1 DIABETES MELLITUS
  2. HUMALOG [Suspect]
     Indication: TYPE 1 DIABETES MELLITUS
     Dosage: UNK, UNK
     Route: 058
     Dates: start: 19970101
  3. HUMALOG [Suspect]
     Dosage: UNK, UNKNOWN
     Route: 058
  4. HUMALOG [Suspect]
     Route: 058
  5. QUINAPRIL [Concomitant]
  6. NORVASC [Concomitant]
  7. ATENOLOL [Concomitant]
  8. HYDROCHLOROTHIAZIDE [Concomitant]
  9. ZOCOR [Concomitant]

REACTIONS (4)
  - CATARACT [None]
  - EYE HAEMORRHAGE [None]
  - PRODUCT PACKAGING QUANTITY ISSUE [None]
  - VISUAL ACUITY REDUCED [None]
